FAERS Safety Report 16070452 (Version 4)
Quarter: 2022Q4

REPORT INFORMATION
  Report Type: Spontaneous
  Country: CZ (occurrence: CZ)
  Receive Date: 20190314
  Receipt Date: 20221011
  Transmission Date: 20230113
  Serious: Yes (Death, Life-Threatening, Hospitalization, Other)
  Sender: FDA-Public Use
  Company Number: CZ-AUROBINDO-AUR-APL-2019-013168

PATIENT
  Age: 50 Year
  Sex: Male

DRUGS (6)
  1. METOPROLOL [Suspect]
     Active Substance: METOPROLOL
     Indication: Blood pressure management
     Dosage: UNK
     Route: 048
  2. METOPROLOL [Suspect]
     Active Substance: METOPROLOL
     Indication: Hypertension
     Dosage: UNK
     Route: 042
  3. BETAXOLOL HYDROCHLORIDE [Suspect]
     Active Substance: BETAXOLOL HYDROCHLORIDE
     Indication: Hypertension
     Dosage: 20 MILLIGRAM, ONCE A DAY (MONOTHERAPY)
     Route: 048
  4. URAPIDIL [Suspect]
     Active Substance: URAPIDIL
     Indication: Blood pressure management
     Dosage: UNK
     Route: 048
  5. URAPIDIL [Suspect]
     Active Substance: URAPIDIL
     Indication: Hypertension
     Dosage: UNK
     Route: 042
  6. URAPIDIL [Suspect]
     Active Substance: URAPIDIL
     Dosage: UNK
     Route: 041

REACTIONS (21)
  - Neurological decompensation [Fatal]
  - Coma [Fatal]
  - Cerebellar ischaemia [Fatal]
  - Aortic dissection [Fatal]
  - Pain [Fatal]
  - Hypertension [Fatal]
  - Disease progression [Unknown]
  - Altered state of consciousness [Recovered/Resolved]
  - Tachycardia [Unknown]
  - Chest pain [Unknown]
  - Disease recurrence [Unknown]
  - Pulse absent [Unknown]
  - Back pain [Unknown]
  - Anxiety [Unknown]
  - Hyperhidrosis [Unknown]
  - Musculoskeletal pain [Unknown]
  - Treatment noncompliance [Unknown]
  - Fibrin D dimer increased [Unknown]
  - Cardiac tamponade [Unknown]
  - Drug ineffective [Unknown]
  - Blood pressure increased [Unknown]

NARRATIVE: CASE EVENT DATE: 20180101
